FAERS Safety Report 5046259-1 (Version None)
Quarter: 2006Q2

REPORT INFORMATION
  Report Type: 
  Country: None (occurrence: None)
  Receive Date: 20060629
  Receipt Date: 20060614
  Transmission Date: 20061013
  Serious: Yes (Life-Threatening, Hospitalization, Other)
  Sender: FDA-Public Use
  Company Number: 2006US-02632

PATIENT
  Age: 43 Year
  Sex: Female

DRUGS (1)
  1. MORPHINE SULFATE [Suspect]

REACTIONS (10)
  - ACCIDENTAL OVERDOSE [None]
  - APNOEA [None]
  - CYANOSIS [None]
  - DRUG ADMINISTRATION ERROR [None]
  - INADEQUATE ANALGESIA [None]
  - INCORRECT DRUG ADMINISTRATION RATE [None]
  - MEDICAL DEVICE COMPLICATION [None]
  - RESPIRATORY FAILURE [None]
  - SELF-MEDICATION [None]
  - SOMNOLENCE [None]
